FAERS Safety Report 12637072 (Version 1)
Quarter: 2016Q3

REPORT INFORMATION
  Report Type: Spontaneous
  Country: US (occurrence: US)
  Receive Date: 20160809
  Receipt Date: 20160809
  Transmission Date: 20161109
  Serious: No
  Sender: FDA-Public Use
  Company Number: US-BEH-2015052250

PATIENT
  Sex: Male
  Weight: 77 kg

DRUGS (41)
  1. COREG [Concomitant]
     Active Substance: CARVEDILOL
  2. CRESTOR [Concomitant]
     Active Substance: ROSUVASTATIN CALCIUM
  3. HYDRALAZINE [Concomitant]
     Active Substance: HYDRALAZINE HYDROCHLORIDE
  4. METAMUCIL [Concomitant]
     Active Substance: PLANTAGO SEED
  5. CENTRUM SILVER [Concomitant]
     Active Substance: MINERALS\VITAMINS
  6. BIAXIN [Concomitant]
     Active Substance: CLARITHROMYCIN
  7. ZYRTEC [Concomitant]
     Active Substance: CETIRIZINE HYDROCHLORIDE
  8. SYMBICORT [Concomitant]
     Active Substance: BUDESONIDE\FORMOTEROL FUMARATE DIHYDRATE
  9. GUAIFENESIN. [Concomitant]
     Active Substance: GUAIFENESIN
  10. NICOTINE. [Concomitant]
     Active Substance: NICOTINE
  11. CLONAZEPAM. [Concomitant]
     Active Substance: CLONAZEPAM
  12. AMLODIPINE [Concomitant]
     Active Substance: AMLODIPINE BESYLATE
  13. CARVEDILOL. [Concomitant]
     Active Substance: CARVEDILOL
  14. PRIVIGEN [Suspect]
     Active Substance: HUMAN IMMUNOGLOBULIN G
     Indication: IMMUNODEFICIENCY COMMON VARIABLE
     Route: 042
  15. HEPARIN [Concomitant]
     Active Substance: HEPARIN SODIUM
  16. SODIUM CHLORIDE. [Concomitant]
     Active Substance: SODIUM CHLORIDE
  17. SULFAMETHOXAZOLE [Concomitant]
     Active Substance: SULFAMETHOXAZOLE
  18. VITAMIN D [Concomitant]
     Active Substance: CHOLECALCIFEROL
  19. IPRATROPIUM [Concomitant]
     Active Substance: IPRATROPIUM
  20. BENZONATATE. [Concomitant]
     Active Substance: BENZONATATE
  21. CIALIS [Concomitant]
     Active Substance: TADALAFIL
  22. ACETYLCYSTEINE. [Concomitant]
     Active Substance: ACETYLCYSTEINE
  23. METHYLPREDNISOLONE. [Concomitant]
     Active Substance: METHYLPREDNISOLONE
  24. XALATAN [Concomitant]
     Active Substance: LATANOPROST
  25. BACTRIM [Concomitant]
     Active Substance: SULFAMETHOXAZOLE\TRIMETHOPRIM
  26. CETIRIZINE [Concomitant]
     Active Substance: CETIRIZINE HYDROCHLORIDE
  27. EPIPEN [Concomitant]
     Active Substance: EPINEPHRINE
     Indication: ANAPHYLACTIC REACTION
  28. LATANOPROST. [Concomitant]
     Active Substance: LATANOPROST
  29. PRIVIGEN [Suspect]
     Active Substance: HUMAN IMMUNOGLOBULIN G
     Route: 042
  30. DIPHENHYDRAMINE. [Concomitant]
     Active Substance: DIPHENHYDRAMINE
     Indication: ANAPHYLACTIC REACTION
  31. CALTRATE [Concomitant]
     Active Substance: CALCIUM CARBONATE
  32. NORVASC [Concomitant]
     Active Substance: AMLODIPINE BESYLATE
  33. ASPIRIN. [Concomitant]
     Active Substance: ASPIRIN
  34. OXYGEN. [Concomitant]
     Active Substance: OXYGEN
  35. MEDROL [Concomitant]
     Active Substance: METHYLPREDNISOLONE
  36. LIDOCAINE. [Concomitant]
     Active Substance: LIDOCAINE
  37. PROTONIX [Concomitant]
     Active Substance: PANTOPRAZOLE SODIUM
  38. FLOMAX [Concomitant]
     Active Substance: TAMSULOSIN HYDROCHLORIDE
  39. MIRALAX [Concomitant]
     Active Substance: POLYETHYLENE GLYCOL 3350
  40. ASTELIN [Concomitant]
     Active Substance: AZELASTINE HYDROCHLORIDE
  41. LEVAQUIN [Concomitant]
     Active Substance: LEVOFLOXACIN

REACTIONS (1)
  - Upper respiratory tract infection [Unknown]
